FAERS Safety Report 9151978 (Version 1)
Quarter: 2013Q1

REPORT INFORMATION
  Report Type: Spontaneous
  Country: US (occurrence: US)
  Receive Date: 20130308
  Receipt Date: 20130308
  Transmission Date: 20140127
  Serious: No
  Sender: FDA-Public Use
  Company Number: US-GLAXOSMITHKLINE-A1004537A

PATIENT
  Age: 39 Year
  Sex: Male

DRUGS (2)
  1. NICORETTE [Suspect]
     Indication: TOBACCO ABUSE
  2. NICODERM CQ [Suspect]
     Indication: TOBACCO ABUSE

REACTIONS (7)
  - Enamel anomaly [Not Recovered/Not Resolved]
  - Tooth fracture [Not Recovered/Not Resolved]
  - Toothache [Not Recovered/Not Resolved]
  - Pain [Not Recovered/Not Resolved]
  - Dependence [Recovered/Resolved]
  - Drug administration error [Unknown]
  - Drug ineffective [Unknown]
